FAERS Safety Report 17250777 (Version 1)
Quarter: 2020Q1

REPORT INFORMATION
  Report Type: Spontaneous
  Country: US (occurrence: US)
  Receive Date: 20200109
  Receipt Date: 20200109
  Transmission Date: 20200409
  Serious: Yes (Other)
  Sender: FDA-Public Use
  Company Number: US-SA-2020SA003578

PATIENT
  Sex: Male

DRUGS (1)
  1. TOUJEO [Suspect]
     Active Substance: INSULIN GLARGINE
     Dosage: ONCE OR TWICE A DAY
     Route: 065

REACTIONS (3)
  - Eye operation [Unknown]
  - Glaucoma [Unknown]
  - Inappropriate schedule of product administration [Unknown]
